FAERS Safety Report 6058371-9 (Version None)
Quarter: 2009Q1

REPORT INFORMATION
  Report Type: 
  Country: None (occurrence: None)
  Receive Date: 20090121
  Receipt Date: 20080125
  Transmission Date: 20090719
  Serious: Yes (Other)
  Sender: FDA-Public Use
  Company Number: HQWYE817204FEB04

PATIENT
  Age: 50 Year
  Sex: Female
  Weight: 70.82 kg

DRUGS (3)
  1. PREMPHASE 14/14 [Suspect]
     Dosage: ORAL
     Route: 048
     Dates: start: 19971201, end: 20020201
  2. CYCRIN [Suspect]
  3. PREMARIN [Suspect]

REACTIONS (1)
  - BREAST CANCER FEMALE [None]
